FAERS Safety Report 6125365-4 (Version None)
Quarter: 2009Q1

REPORT INFORMATION
  Report Type: 
  Country: None (occurrence: None)
  Receive Date: 20090316
  Receipt Date: 20090305
  Transmission Date: 20090719
  Serious: Yes (Disabling)
  Sender: FDA-Public Use
  Company Number: 230017M09GBR

PATIENT
  Age: 36 Year
  Sex: Female
  Weight: 35 kg

DRUGS (2)
  1. REBIF [Suspect]
     Indication: MULTIPLE SCLEROSIS
     Dosage: 44 MCG, 3 IN 1 WEEKS, SUBCUTANEOUS
     Route: 058
  2. DEPOT INJECTION (ALL OTHER THERAPEUTIC PRODUCTS) [Concomitant]

REACTIONS (5)
  - ECZEMA [None]
  - FEELING ABNORMAL [None]
  - INJECTION SITE ECZEMA [None]
  - INJECTION SITE REACTION [None]
  - SCAB [None]
